FAERS Safety Report 13557026 (Version 1)
Quarter: 2017Q2

REPORT INFORMATION
  Report Type: Spontaneous
  Country: US (occurrence: US)
  Receive Date: 20170517
  Receipt Date: 20170517
  Transmission Date: 20170830
  Serious: Yes (Hospitalization)
  Sender: FDA-Public Use
  Company Number: None

PATIENT
  Age: 71 Year
  Sex: Male
  Weight: 87.1 kg

DRUGS (2)
  1. DARATUMUMAB [Suspect]
     Active Substance: DARATUMUMAB
     Indication: PLASMA CELL MYELOMA
     Dosage: OTHER FREQUENCY:DAYS 7, 14, AND 21;?
     Route: 040
     Dates: start: 20170407
  2. POMALIDAMIDE [Suspect]
     Active Substance: POMALIDOMIDE
     Indication: PLASMA CELL MYELOMA
     Route: 048
     Dates: start: 20170407, end: 20170409

REACTIONS (3)
  - Myocardial infarction [None]
  - Diabetes insipidus [None]
  - Polydipsia [None]

NARRATIVE: CASE EVENT DATE: 20170425
